FAERS Safety Report 5888555-1 (Version None)
Quarter: 2008Q3

REPORT INFORMATION
  Report Type: 
  Country: None (occurrence: None)
  Receive Date: 20080918
  Receipt Date: 20080916
  Transmission Date: 20090109
  Serious: Yes (Hospitalization)
  Sender: FDA-Public Use
  Company Number: JP-B.I. PHARMACEUTICALS,INC./RIDGEFIELD-2008-BP-02664NB

PATIENT
  Sex: Male
  Weight: 64.9 kg

DRUGS (8)
  1. MICARDIS [Suspect]
     Indication: HYPERTENSION
     Dosage: 20MG
     Route: 048
     Dates: start: 20070119, end: 20070626
  2. AMARYL [Concomitant]
     Dosage: 1MG
     Route: 048
     Dates: end: 20070704
  3. SALOBEL [Concomitant]
     Dosage: 100MG
     Route: 048
  4. ASPIRIN [Concomitant]
     Dosage: 100MG
     Route: 048
  5. LIPITOR [Concomitant]
     Dosage: 10MG
     Route: 048
  6. ADALAT CC [Concomitant]
     Indication: HYPERTENSION
     Dosage: 20MG
     Route: 048
  7. GUANABENZ ACETATE [Concomitant]
     Indication: HYPERTENSION
     Dosage: 2MG
     Route: 048
  8. METFORMIN HYDROCHLORIDE [Concomitant]
     Dosage: 2ANZ
     Route: 048
     Dates: end: 20070704

REACTIONS (1)
  - RENAL FAILURE [None]
